FAERS Safety Report 13964431 (Version 1)
Quarter: 2017Q3

REPORT INFORMATION
  Report Type: Spontaneous
  Country: US (occurrence: US)
  Receive Date: 20170913
  Receipt Date: 20170913
  Transmission Date: 20171128
  Serious: No
  Sender: FDA-Public Use
  Company Number: None

PATIENT
  Age: 58 Year
  Sex: Male
  Weight: 61.2 kg

DRUGS (2)
  1. NICOTINE TRANSDERMAL SYSTEM [Suspect]
     Active Substance: NICOTINE
     Indication: SMOKING CESSATION THERAPY
     Route: 062
     Dates: start: 20170911, end: 20170912
  2. EQUATE NICOTINE TRANSDERMAL PATCH [Concomitant]

REACTIONS (3)
  - Product substitution issue [None]
  - Rash [None]
  - Skin disorder [None]

NARRATIVE: CASE EVENT DATE: 20170913
